FAERS Safety Report 12613605 (Version 1)
Quarter: 2016Q3

REPORT INFORMATION
  Report Type: Spontaneous
  Country: FR (occurrence: FR)
  Receive Date: 20160802
  Receipt Date: 20160802
  Transmission Date: 20161109
  Serious: Yes (Death)
  Sender: FDA-Public Use
  Company Number: FR-WATSON-2016-16858

PATIENT
  Age: 60 Year
  Sex: Male

DRUGS (6)
  1. ERLOTINIB [Interacting]
     Active Substance: ERLOTINIB
     Indication: DISEASE PROGRESSION
     Dosage: 150 MG, DAILY
     Route: 065
  2. RACECADOTRIL [Concomitant]
     Active Substance: RACECADOTRIL
     Indication: DIARRHOEA
     Dosage: UNK
     Route: 065
  3. AMOXICILLIN CLAVULANIC ACID [Concomitant]
     Active Substance: AMOXICILLIN\CLAVULANIC ACID
     Indication: CITROBACTER SEPSIS
     Dosage: UNK
     Route: 065
  4. CIPROFLOXACIN HYDROCHLORIDE (UNKNOWN) [Suspect]
     Active Substance: CIPROFLOXACIN HYDROCHLORIDE
     Indication: CITROBACTER SEPSIS
     Dosage: UNK
     Route: 065
  5. CEFTAZIDIME. [Concomitant]
     Active Substance: CEFTAZIDIME
     Indication: CITROBACTER SEPSIS
     Dosage: UNK
     Route: 065
  6. PIPERACILLIN AND TAZOBACTAM [Concomitant]
     Active Substance: PIPERACILLIN SODIUM\TAZOBACTAM SODIUM
     Indication: CITROBACTER SEPSIS
     Dosage: UNK
     Route: 065

REACTIONS (7)
  - Large intestinal obstruction [Fatal]
  - Ischaemia [Fatal]
  - Large intestine perforation [Fatal]
  - Drug interaction [Fatal]
  - Psoas abscess [Fatal]
  - Pneumoperitoneum [Fatal]
  - Necrosis [Fatal]
